FAERS Safety Report 6885063-6 (Version None)
Quarter: 2010Q3

REPORT INFORMATION
  Report Type: 
  Country: None (occurrence: None)
  Receive Date: 20100729
  Receipt Date: 20071119
  Transmission Date: 20110219
  Serious: Yes (Other)
  Sender: FDA-Public Use
  Company Number: US-PFIZER INC-2007091215

PATIENT
  Sex: Male
  Weight: 81.6 kg

DRUGS (8)
  1. CELEBREX [Suspect]
     Indication: PAIN IN EXTREMITY
     Dates: start: 20070401, end: 20070401
  2. ACETYLSALICYLIC ACID SRT [Concomitant]
  3. PROSCAR [Concomitant]
  4. LOVASTATIN [Concomitant]
  5. OMEPRAZOLE [Concomitant]
  6. LIPITOR [Concomitant]
  7. PRAVASTATIN [Concomitant]
  8. GABAPENTIN [Concomitant]

REACTIONS (2)
  - PAIN IN EXTREMITY [None]
  - SWELLING FACE [None]
